FAERS Safety Report 5447784-1 (Version None)
Quarter: 2007Q3

REPORT INFORMATION
  Report Type: 
  Country: None (occurrence: None)
  Receive Date: 20070910
  Receipt Date: 20070904
  Transmission Date: 20080115
  Serious: Yes (Life-Threatening)
  Sender: FDA-Public Use
  Company Number: AU-ASTRAZENECA-2007AP05509

PATIENT

DRUGS (1)
  1. NAROPIN [Suspect]
     Indication: ANAESTHESIA

REACTIONS (1)
  - CIRCULATORY COLLAPSE [None]
